FAERS Safety Report 4353904-2 (Version None)
Quarter: 2004Q2

REPORT INFORMATION
  Report Type: 
  Country: None (occurrence: None)
  Receive Date: 20040503
  Receipt Date: 20040422
  Transmission Date: 20050107
  Serious: No
  Sender: FDA-Public Use
  Company Number: 04H-286-0256334-00

PATIENT
  Age: 43 Year
  Sex: Male

DRUGS (1)
  1. DOPAMINE HYDROCHLORIDE INJECTION (DOPAMINE HYDROCHLORIDE) (DOPAMINE HY [Suspect]
     Indication: BLOOD PRESSURE INCREASED
     Dosage: 8 MCG/KG/MIN

REACTIONS (8)
  - GANGRENE [None]
  - GASTRIC HAEMORRHAGE [None]
  - INJECTION SITE EXTRAVASATION [None]
  - PNEUMONIA [None]
  - RESPIRATORY FAILURE [None]
  - SKIN LESION [None]
  - STAPHYLOCOCCAL INFECTION [None]
  - VASOCONSTRICTION [None]
